FAERS Safety Report 8962473 (Version 1)
Quarter: 2012Q4

REPORT INFORMATION
  Report Type: Spontaneous
  Country: US (occurrence: None)
  Receive Date: 20121211
  Receipt Date: 20121211
  Transmission Date: 20130627
  Serious: Yes (Hospitalization)
  Sender: FDA-Public Use
  Company Number: None

PATIENT
  Age: 85 Year
  Sex: Female
  Weight: 87.2 kg

DRUGS (1)
  1. DECITABINE [Suspect]
     Indication: MDS
     Route: 058
     Dates: start: 20110829

REACTIONS (2)
  - Neutropenia [None]
  - Pyrexia [None]
